FAERS Safety Report 9947738 (Version 1)
Quarter: 2014Q1

REPORT INFORMATION
  Report Type: Report from Study
  Country: US (occurrence: US)
  Receive Date: 20140303
  Receipt Date: 20140303
  Transmission Date: 20141002
  Serious: No
  Sender: FDA-Public Use
  Company Number: US-ABBVIE-13P-163-1059843-00

PATIENT
  Age: 60 Year
  Sex: Female

DRUGS (6)
  1. HUMIRA [Suspect]
     Indication: COLITIS ULCERATIVE
     Dosage: LOADING DOSE
     Dates: start: 20130214, end: 20130214
  2. HUMIRA [Suspect]
  3. LIALDA [Concomitant]
     Indication: COLITIS ULCERATIVE
  4. NORVASC [Concomitant]
     Indication: HYPERTENSION
  5. HCTZ [Concomitant]
     Indication: HYPERTENSION
  6. CLARITIN [Concomitant]
     Indication: HYPERSENSITIVITY

REACTIONS (1)
  - Injection site bruising [Not Recovered/Not Resolved]
